FAERS Safety Report 4448198-3 (Version None)
Quarter: 2004Q3

REPORT INFORMATION
  Report Type: 
  Country: None (occurrence: None)
  Receive Date: 20040913
  Receipt Date: 20040830
  Transmission Date: 20050211
  Serious: Yes (Other)
  Sender: FDA-Public Use
  Company Number: US-GLAXOSMITHKLINE-A0525213A

PATIENT
  Sex: Female
  Weight: 3 kg

DRUGS (3)
  1. LAMICTAL [Suspect]
     Indication: BIPOLAR DISORDER
     Dosage: 25MG PER DAY
     Dates: start: 20040402
  2. PRENATAL VITAMINS [Concomitant]
  3. VALIUM [Concomitant]

REACTIONS (2)
  - BARBITURATES [None]
  - DRUG EXPOSURE DURING PREGNANCY [None]
